FAERS Safety Report 6185363-1 (Version None)
Quarter: 2009Q2

REPORT INFORMATION
  Report Type: 
  Country: None (occurrence: None)
  Receive Date: 20090507
  Receipt Date: 20090423
  Transmission Date: 20091009
  Serious: Yes (Life-Threatening, Hospitalization, Disabling)
  Sender: FDA-Public Use
  Company Number: 8045565

PATIENT
  Age: 23 Year
  Sex: Female

DRUGS (13)
  1. PREDNISOLONE [Suspect]
     Indication: TUBERCULOSIS OF CENTRAL NERVOUS SYSTEM
     Dosage: 10 MG 1/D PO
     Route: 048
  2. ACYCLOVIR SODIUM [Concomitant]
  3. ADCAL-D3 [Concomitant]
  4. AMITRIPTLINE HYDROCHLORIDE TAB [Concomitant]
  5. CLEXANE [Concomitant]
  6. DICLOFENAC [Concomitant]
  7. ETHAMBUTOL HCL [Concomitant]
  8. FERROUS SULFATE TAB [Concomitant]
  9. FISH OIL [Concomitant]
  10. MAGNESIUM HYDROXIDE TAB [Concomitant]
  11. PARACETAMOL [Concomitant]
  12. PYRIDOXINE [Concomitant]
  13. RIFAMPIN AND ISONIAZID [Concomitant]

REACTIONS (4)
  - CAESAREAN SECTION [None]
  - DRUG EXPOSURE DURING PREGNANCY [None]
  - HERPES ZOSTER [None]
  - PANCREATITIS ACUTE [None]
